FAERS Safety Report 8326212-2 (Version None)
Quarter: 2012Q2

REPORT INFORMATION
  Report Type: 
  Country: None (occurrence: None)
  Receive Date: 20120501
  Receipt Date: 20120424
  Transmission Date: 20120825
  Serious: Yes (Other)
  Sender: FDA-Public Use
  Company Number: BR-PFIZER INC-2012102318

PATIENT
  Age: 40 Year
  Sex: Female

DRUGS (3)
  1. ALPRAZOLAM [Suspect]
     Indication: PANIC DISORDER
  2. ALPRAZOLAM [Suspect]
     Indication: ANXIETY
     Dosage: UNK
     Route: 048
  3. VENLAFAXINE HCL [Suspect]
     Dosage: UNK
     Route: 048

REACTIONS (6)
  - DEPRESSION [None]
  - SCIATIC NERVE INJURY [None]
  - RESTLESSNESS [None]
  - HEART RATE INCREASED [None]
  - DEAFNESS UNILATERAL [None]
  - FEELING ABNORMAL [None]
